FAERS Safety Report 10443986 (Version 1)
Quarter: 2014Q3

REPORT INFORMATION
  Report Type: Spontaneous
  Country: US (occurrence: US)
  Receive Date: 20140910
  Receipt Date: 20140910
  Transmission Date: 20150326
  Serious: No
  Sender: FDA-Public Use
  Company Number: US-BAYER-2014-135103

PATIENT
  Age: 40 Year
  Sex: Female
  Weight: 106.12 kg

DRUGS (3)
  1. ALEVE [Suspect]
     Active Substance: NAPROXEN SODIUM
     Indication: HEADACHE
     Dosage: 3 DF, ONCE
     Route: 048
     Dates: start: 20140903, end: 20140903
  2. ALEVE [Suspect]
     Active Substance: NAPROXEN SODIUM
     Indication: HEADACHE
     Dosage: UNK DF, PRN
     Route: 048
     Dates: start: 20140903, end: 20140905
  3. ALEVE [Suspect]
     Active Substance: NAPROXEN SODIUM
     Indication: HEADACHE
     Dosage: 8 DF IN A DAY
     Route: 048
     Dates: start: 20140903, end: 20140904

REACTIONS (3)
  - Drug ineffective [None]
  - Extra dose administered [None]
  - Inappropriate schedule of drug administration [None]

NARRATIVE: CASE EVENT DATE: 20140903
